FAERS Safety Report 8543899-X (Version None)
Quarter: 2012Q3

REPORT INFORMATION
  Report Type: 
  Country: None (occurrence: None)
  Receive Date: 20120727
  Receipt Date: 20120718
  Transmission Date: 20120928
  Serious: No
  Sender: FDA-Public Use
  Company Number: US-009507513-1207USA008836

PATIENT

DRUGS (3)
  1. VICTRELIS [Suspect]
     Route: 048
  2. REBETOL [Suspect]
  3. PEG-INTRON [Suspect]
     Indication: HEPATITIS C
     Dosage: 120 MICROGRAM, QW
     Dates: start: 20120301

REACTIONS (1)
  - BLOOD COUNT ABNORMAL [None]
